FAERS Safety Report 6376187-0 (Version None)
Quarter: 2009Q3

REPORT INFORMATION
  Report Type: 
  Country: None (occurrence: None)
  Receive Date: 20090918
  Receipt Date: 20090903
  Transmission Date: 20100115
  Serious: Yes (Disabling)
  Sender: FDA-Public Use
  Company Number: 8051964

PATIENT
  Age: 71 Year
  Sex: Male

DRUGS (9)
  1. PREDNISOLONE SODIUM PHOSPHATE [Suspect]
     Indication: IRRITABLE BOWEL SYNDROME
     Dosage: 40 MG, PO
     Route: 048
     Dates: start: 20090620
  2. PREDNISOLONE SODIUM PHOSPHATE [Suspect]
     Indication: IRRITABLE BOWEL SYNDROME
     Dosage: 15 MG, /D; PO
     Route: 048
  3. ASACOL [Concomitant]
  4. ATENOLOL [Concomitant]
  5. CETIRIZINE HCL [Concomitant]
  6. FELODIPINE [Concomitant]
  7. MICARDIS [Concomitant]
  8. OMEPRAZOLE [Concomitant]
  9. SIMVASTATIN [Concomitant]

REACTIONS (1)
  - METAMORPHOPSIA [None]
